FAERS Safety Report 11086769 (Version 1)
Quarter: 2015Q2

REPORT INFORMATION
  Report Type: Spontaneous
  Country: US (occurrence: None)
  Receive Date: 20150501
  Receipt Date: 20150501
  Transmission Date: 20150821
  Serious: Yes (Other)
  Sender: FDA-Public Use
  Company Number: None

PATIENT
  Age: 68 Year
  Sex: Female

DRUGS (3)
  1. LASIX [Concomitant]
     Active Substance: FUROSEMIDE
  2. FUROSEMIDE. [Concomitant]
     Active Substance: FUROSEMIDE
  3. FUROSEMIDE. [Suspect]
     Active Substance: FUROSEMIDE
     Indication: HYPERALDOSTERONISM
     Dosage: 2-3 TABLETS
     Route: 048
     Dates: start: 20150309, end: 20150323

REACTIONS (2)
  - Product substitution issue [None]
  - Swelling [None]

NARRATIVE: CASE EVENT DATE: 20150323
